FAERS Safety Report 15886861 (Version 2)
Quarter: 2019Q1

REPORT INFORMATION
  Report Type: Report from Study
  Country: JP (occurrence: JP)
  Receive Date: 20190129
  Receipt Date: 20190206
  Transmission Date: 20190417
  Serious: Yes (Hospitalization)
  Sender: FDA-Public Use
  Company Number: JP-BRISTOL-MYERS SQUIBB COMPANY-BMS-2019-008369

PATIENT
  Age: 74 Year
  Sex: Male
  Weight: 47 kg

DRUGS (12)
  1. ANORO ELLIPTA [Concomitant]
     Active Substance: UMECLIDINIUM BROMIDE\VILANTEROL TRIFENATATE
     Indication: CHRONIC OBSTRUCTIVE PULMONARY DISEASE
     Dosage: APPROPRIATE DOSAGE, EVERYDAY
     Route: 007
     Dates: start: 20180920
  2. UREPEARL [Concomitant]
     Active Substance: UREA
     Indication: DRY SKIN
     Dosage: UNK UNK, Q12H
     Route: 062
  3. MULCHINA [Concomitant]
     Indication: HERPES OPHTHALMIC
     Dosage: UNK UNK, Q12H
     Route: 047
  4. PEMETREXED DISODIUM [Suspect]
     Active Substance: PEMETREXED DISODIUM
     Indication: PLEURAL MESOTHELIOMA MALIGNANT
     Dosage: 532 MG, Q3WK
     Route: 042
     Dates: start: 20180810, end: 20181012
  5. MYSERA [Concomitant]
     Active Substance: MOMETASONE FUROATE
     Indication: DRY SKIN
     Dosage: UNK UNK, Q12H
     Route: 062
  6. LANSOPRAZOLE. [Concomitant]
     Active Substance: LANSOPRAZOLE
     Indication: DECREASED APPETITE
     Dosage: 15 MG, EVERYDAY
     Route: 048
     Dates: start: 20180919
  7. CISPLATIN. [Suspect]
     Active Substance: CISPLATIN
     Indication: PLEURAL MESOTHELIOMA MALIGNANT
     Dosage: UNK
     Route: 042
     Dates: start: 20180810, end: 20181012
  8. HIRUDOID [Concomitant]
     Active Substance: GLYCOSAMINOGLYCANS
     Indication: DRY SKIN
     Dosage: UNK UNK, Q12H
     Route: 062
  9. FLUMETHOLON [Concomitant]
     Active Substance: FLUOROMETHOLONE
     Indication: HERPES OPHTHALMIC
     Dosage: UNK UNK, Q12H
     Route: 047
  10. AMLODIPINE [Concomitant]
     Active Substance: AMLODIPINE BESYLATE
     Indication: HYPERTENSION
     Dosage: 5 MG, EVERYDAY
     Route: 048
  11. ACICLOVIR [Concomitant]
     Active Substance: ACYCLOVIR
     Indication: HERPES OPHTHALMIC
     Dosage: UNK UNK, QD
     Route: 047
  12. NIVOLUMAB [Suspect]
     Active Substance: NIVOLUMAB
     Indication: PLEURAL MESOTHELIOMA MALIGNANT
     Dosage: 360 MG, Q3WK
     Route: 041
     Dates: start: 20180810

REACTIONS (1)
  - Diarrhoea [Not Recovered/Not Resolved]

NARRATIVE: CASE EVENT DATE: 20190103
